FAERS Safety Report 13017910 (Version 6)
Quarter: 2017Q2

REPORT INFORMATION
  Report Type: Spontaneous
  Country: US (occurrence: US)
  Receive Date: 20161212
  Receipt Date: 20170419
  Transmission Date: 20170830
  Serious: Yes (Congenital Anomaly, Other)
  Sender: FDA-Public Use
  Company Number: PHEH2016US032210

PATIENT
  Sex: Male

DRUGS (3)
  1. ZOFRAN [Suspect]
     Active Substance: ONDANSETRON HYDROCHLORIDE
     Indication: FOETAL EXPOSURE DURING PREGNANCY
     Dosage: MOTHER DOSE: 8 MG, Q8H
     Route: 064
  2. ZOFRAN ODT [Suspect]
     Active Substance: ONDANSETRON HYDROCHLORIDE
     Indication: FOETAL EXPOSURE DURING PREGNANCY
     Dosage: MOTHER DOSE: 08 MG, Q8H
     Route: 064
  3. ONDANSETRONE DR. REDDY^S [Suspect]
     Active Substance: ONDANSETRON HYDROCHLORIDE
     Indication: FOETAL EXPOSURE DURING PREGNANCY
     Dosage: MOTHER DOSE: 8 MG, Q8H
     Route: 064

REACTIONS (26)
  - Atrial septal defect [Unknown]
  - Bicuspid aortic valve [Unknown]
  - Congenital aortic anomaly [Unknown]
  - Cyanosis neonatal [Unknown]
  - Right ventricular dilatation [Unknown]
  - Injury [Unknown]
  - Sinus bradycardia [Unknown]
  - Rash [Unknown]
  - Laevocardia [Unknown]
  - Tricuspid valve incompetence [Unknown]
  - Pulmonary valve incompetence [Unknown]
  - Foetal exposure during pregnancy [Unknown]
  - Coarctation of the aorta [Unknown]
  - Ventricular septal defect [Unknown]
  - Left-to-right cardiac shunt [Unknown]
  - Right ventricular hypertrophy [Unknown]
  - Chest pain [Unknown]
  - Heart disease congenital [Unknown]
  - Phimosis [Unknown]
  - Aorta hypoplasia [Unknown]
  - Right atrial dilatation [Unknown]
  - Urticaria [Unknown]
  - Patent ductus arteriosus [Unknown]
  - Bundle branch block right [Unknown]
  - Right atrial enlargement [Unknown]
  - Choking [Unknown]
